FAERS Safety Report 6375421-0 (Version None)
Quarter: 2009Q3

REPORT INFORMATION
  Report Type: 
  Country: None (occurrence: None)
  Receive Date: 20090922
  Receipt Date: 20090922
  Transmission Date: 20100115
  Serious: Yes (Hospitalization, Disabling, Other)
  Sender: FDA-Public Use
  Company Number: None

PATIENT
  Age: 58 Year
  Sex: Male
  Weight: 97.5234 kg

DRUGS (1)
  1. CIALIS [Suspect]
     Dosage: 20 M AS NEEDED

REACTIONS (3)
  - HEADACHE [None]
  - HEARING IMPAIRED [None]
  - TINNITUS [None]
